FAERS Safety Report 16121903 (Version 3)
Quarter: 2019Q2

REPORT INFORMATION
  Report Type: Spontaneous
  Country: RO (occurrence: RO)
  Receive Date: 20190327
  Receipt Date: 20190403
  Transmission Date: 20190711
  Serious: Yes (Hospitalization, Other)
  Sender: FDA-Public Use
  Company Number: RO-B.I. PHARMACEUTICALS,INC./RIDGEFIELD-2019-BI-013245

PATIENT
  Age: 5 Month
  Sex: Female
  Weight: 5.12 kg

DRUGS (4)
  1. KALETRA [Concomitant]
     Active Substance: LOPINAVIR\RITONAVIR
     Indication: HIV INFECTION
     Route: 065
     Dates: start: 2007, end: 2013
  2. VIRAMUNE [Suspect]
     Active Substance: NEVIRAPINE
     Indication: HIV INFECTION
     Route: 065
     Dates: start: 2006, end: 2013
  3. NELFINAVIR [Concomitant]
     Active Substance: NELFINAVIR
     Indication: HIV INFECTION
     Route: 065
     Dates: end: 2007
  4. LAMIVUDINE. [Concomitant]
     Active Substance: LAMIVUDINE
     Indication: HIV INFECTION
     Route: 065
     Dates: end: 2013

REACTIONS (11)
  - Enterocolitis [Unknown]
  - Pneumonia haemophilus [Unknown]
  - HIV-associated neurocognitive disorder [Unknown]
  - Upper respiratory tract infection [Unknown]
  - Otitis media acute [Unknown]
  - Oropharyngeal candidiasis [Unknown]
  - Hypercholesterolaemia [Unknown]
  - Oral herpes [Unknown]
  - Pertussis [Unknown]
  - Moraxella infection [Unknown]
  - Virologic failure [Unknown]

NARRATIVE: CASE EVENT DATE: 2013
